FAERS Safety Report 16563384 (Version 2)
Quarter: 2024Q1

REPORT INFORMATION
  Report Type: Report from Study
  Country: US (occurrence: US)
  Receive Date: 20190712
  Receipt Date: 20240229
  Transmission Date: 20240410
  Serious: Yes (Hospitalization)
  Sender: FDA-Public Use
  Company Number: US-BIOGEN-2019BI00758510

PATIENT
  Sex: Female
  Weight: 47.67 kg

DRUGS (1)
  1. SPINRAZA [Suspect]
     Active Substance: NUSINERSEN
     Indication: Spinal muscular atrophy
     Dosage: PHYSICIAN TO ADMINISTER 12MG/5ML INTRATHECALLY ONCE EVERY 4 MONTHS.
     Route: 050

REACTIONS (5)
  - Parathyroid tumour [Unknown]
  - Osteoporosis [Unknown]
  - Blood calcium increased [Unknown]
  - Nephrolithiasis [Unknown]
  - Depression [Unknown]
